FAERS Safety Report 4444969-8 (Version None)
Quarter: 2004Q3

REPORT INFORMATION
  Report Type: 
  Country: None (occurrence: None)
  Receive Date: 20040907
  Receipt Date: 20040907
  Transmission Date: 20050211
  Serious: No
  Sender: FDA-Public Use
  Company Number: None

PATIENT
  Age: 59 Year
  Sex: Male

DRUGS (6)
  1. RANITIDINE [Suspect]
     Indication: GASTROOESOPHAGEAL REFLUX DISEASE
     Dosage: 150 MG TWICE DAILY
  2. RANITIDINE [Suspect]
     Indication: PEPTIC ULCER
     Dosage: 150 MG TWICE DAILY
  3. OMEPRAZOLE [Concomitant]
  4. CARISPRODOL [Concomitant]
  5. OXYCODONE HCL [Concomitant]
  6. APAP TAB [Concomitant]

REACTIONS (3)
  - MALAISE [None]
  - NAUSEA [None]
  - PHARMACEUTICAL PRODUCT COMPLAINT [None]
